FAERS Safety Report 23302589 (Version 2)
Quarter: 2024Q1

REPORT INFORMATION
  Report Type: Spontaneous
  Country: US (occurrence: US)
  Receive Date: 20231215
  Receipt Date: 20240130
  Transmission Date: 20240409
  Serious: Yes (Hospitalization)
  Sender: FDA-Public Use
  Company Number: US-PFIZER INC-PV202300202884

PATIENT
  Age: 88 Year
  Sex: Male
  Weight: 79.819 kg

DRUGS (11)
  1. VYNDAMAX [Suspect]
     Active Substance: TAFAMIDIS
     Indication: Amyloidosis
     Dosage: 61 MG
     Dates: start: 202310
  2. VYNDAMAX [Suspect]
     Active Substance: TAFAMIDIS
     Indication: Cardiac disorder
  3. ELIQUIS [Concomitant]
     Active Substance: APIXABAN
     Dosage: UNK
     Dates: start: 2023
  4. FAMOTIDINE [Concomitant]
     Active Substance: FAMOTIDINE
     Dosage: UNK
     Dates: start: 2023
  5. BUMETANIDE [Concomitant]
     Active Substance: BUMETANIDE
     Dosage: UNK
     Dates: start: 2023
  6. KLOR-CON/EF [Concomitant]
     Active Substance: POTASSIUM BICARBONATE
     Dosage: UNK
     Dates: start: 2023
  7. ISOSORBIDE MONONITRATE [Concomitant]
     Active Substance: ISOSORBIDE MONONITRATE
     Dosage: UNK
     Dates: start: 2023
  8. FINASTERIDE [Concomitant]
     Active Substance: FINASTERIDE
     Dosage: UNK
     Dates: start: 2023
  9. VALSARTAN [Concomitant]
     Active Substance: VALSARTAN
     Dosage: UNK
     Dates: start: 2023
  10. CALQUENCE [Concomitant]
     Active Substance: ACALABRUTINIB
     Dosage: UNK
     Dates: start: 2023
  11. METOPROLOL SUCCINATE [Concomitant]
     Active Substance: METOPROLOL SUCCINATE
     Dosage: UNK
     Dates: start: 2023

REACTIONS (5)
  - Wound [Unknown]
  - Wound haemorrhage [Unknown]
  - Back pain [Unknown]
  - Musculoskeletal stiffness [Unknown]
  - Somnolence [Unknown]

NARRATIVE: CASE EVENT DATE: 20231001
